FAERS Safety Report 9181423 (Version 1)
Quarter: 2013Q1

REPORT INFORMATION
  Report Type: Spontaneous
  Country: US (occurrence: None)
  Receive Date: 20120621
  Receipt Date: 20120621
  Transmission Date: 20140127
  Serious: Yes (Other)
  Sender: FDA-Public Use
  Company Number: 032630

PATIENT
  Sex: Male
  Weight: 78.5 kg

DRUGS (4)
  1. CIMZIA [Suspect]
     Dosage: EVERY 4 WEEKS
     Route: 058
     Dates: start: 201005
  2. PENTASA [Concomitant]
  3. VITAMIN B12 NOS [Concomitant]
  4. BETAMETHASONE W/ CLOTRIMAZOLE [Concomitant]

REACTIONS (2)
  - Crohn^s disease [None]
  - Intestinal obstruction [None]
